FAERS Safety Report 9586893 (Version 1)
Quarter: 2013Q4

REPORT INFORMATION
  Report Type: Spontaneous
  Country: FR (occurrence: FR)
  Receive Date: 20131003
  Receipt Date: 20131003
  Transmission Date: 20140711
  Serious: Yes (Other)
  Sender: FDA-Public Use
  Company Number: FR-SA-2013SA096515

PATIENT
  Age: 62 Year
  Sex: Female

DRUGS (8)
  1. EVOLTRA [Suspect]
     Indication: ACUTE LYMPHOCYTIC LEUKAEMIA
     Dosage: PATIENT WAS HOSPITALIZED TO RECEIVE MEDICALLY SIGNIFICANT TREATMENT WITH CLOFARABINE 60 MG.
     Route: 042
     Dates: start: 20130309, end: 20130310
  2. BACTRIM [Concomitant]
  3. ZELITREX [Concomitant]
  4. ENDOXAN [Concomitant]
  5. UROMITEXAN [Concomitant]
  6. ETOPOSIDE [Concomitant]
  7. SOLUDECADRON [Concomitant]
  8. ZOPHREN [Concomitant]

REACTIONS (2)
  - Hepatocellular injury [Recovering/Resolving]
  - Lipase increased [Recovered/Resolved]
